FAERS Safety Report 23894611 (Version 2)
Quarter: 2024Q2

REPORT INFORMATION
  Report Type: Spontaneous
  Country: DE (occurrence: DE)
  Receive Date: 20240524
  Receipt Date: 20240530
  Transmission Date: 20240716
  Serious: Yes (Other)
  Sender: FDA-Public Use
  Company Number: DE-TEVA-VS-3195878

PATIENT
  Age: 60 Year
  Sex: Male

DRUGS (1)
  1. ALBUTEROL [Suspect]
     Active Substance: ALBUTEROL
     Dosage: DOSIERSPRAY
     Route: 065

REACTIONS (5)
  - Emphysema [Unknown]
  - Drug ineffective [Unknown]
  - Cough [Unknown]
  - Skin fissures [Unknown]
  - Allergic reaction to excipient [Unknown]
